FAERS Safety Report 6005071-7 (Version None)
Quarter: 2008Q4

REPORT INFORMATION
  Report Type: 
  Country: None (occurrence: None)
  Receive Date: 20081216
  Receipt Date: 20081209
  Transmission Date: 20090506
  Serious: Yes (Hospitalization)
  Sender: FDA-Public Use
  Company Number: PHHY2008HU31196

PATIENT

DRUGS (1)
  1. DIOVAN HCT [Suspect]
     Indication: HYPERTENSION
     Dosage: 160 MG VALSARTAN/12.5 MG HYDROCHLOROTHIAZIDE
     Dates: start: 20081022, end: 20081127

REACTIONS (1)
  - BLOOD AMYLASE INCREASED [None]
